FAERS Safety Report 4578872-X (Version None)
Quarter: 2005Q1

REPORT INFORMATION
  Report Type: 
  Country: None (occurrence: None)
  Receive Date: 20050211
  Receipt Date: 20030917
  Transmission Date: 20050727
  Serious: Yes (Life-Threatening, Hospitalization, Disabling)
  Sender: FDA-Public Use
  Company Number: GB-AMGEN-US048427

PATIENT
  Sex: Male

DRUGS (6)
  1. ENBREL [Suspect]
     Indication: RHEUMATOID ARTHRITIS
     Route: 058
     Dates: start: 20021206, end: 20021215
  2. PREDNISOLONE [Concomitant]
     Dates: start: 19980101
  3. ROFECOXIB [Concomitant]
     Dates: start: 20021001
  4. ACETAMINOPHEN [Concomitant]
     Dates: start: 19980101
  5. FUROSEMIDE [Concomitant]
     Dates: start: 20020601
  6. ATENOLOL [Concomitant]
     Dates: start: 20020601

REACTIONS (2)
  - ARTHRITIS BACTERIAL [None]
  - LISTERIOSIS [None]
